FAERS Safety Report 5146835-1 (Version None)
Quarter: 2006Q4

REPORT INFORMATION
  Report Type: 
  Country: None (occurrence: None)
  Receive Date: 20061107
  Receipt Date: 20061107
  Transmission Date: 20070319
  Serious: Yes (Hospitalization)
  Sender: FDA-Public Use
  Company Number: None

PATIENT
  Sex: Female

DRUGS (1)
  1. NAPROSYN [Suspect]
     Indication: ARTHRALGIA
     Dosage: HOME MEDICATION

REACTIONS (5)
  - ANAEMIA [None]
  - COAGULOPATHY [None]
  - LOSS OF CONSCIOUSNESS [None]
  - METABOLIC DISORDER [None]
  - RECTAL HAEMORRHAGE [None]
